FAERS Safety Report 16130020 (Version 1)
Quarter: 2019Q1

REPORT INFORMATION
  Report Type: Spontaneous
  Country: FR (occurrence: FR)
  Receive Date: 20190328
  Receipt Date: 20190328
  Transmission Date: 20190418
  Serious: Yes (Other)
  Sender: FDA-Public Use
  Company Number: FR-TEVA-2019-FR-1029350

PATIENT
  Age: 70 Year
  Sex: Male
  Weight: 74 kg

DRUGS (4)
  1. LEVODOPA CARBIDOPA TEVA [Suspect]
     Active Substance: CARBIDOPA\LEVODOPA
     Indication: PARKINSON^S DISEASE
     Dosage: 2 DOSAGE FORMS DAILY;
     Route: 048
     Dates: start: 20190115, end: 20190205
  2. LEVODOPA CARBIDOPA TEVA 100 MG/10 MG, COMPRIM? S?CABLE [Concomitant]
     Dosage: FORM STRENGTH:100 MG/10 MG
  3. AZILECT [Concomitant]
     Active Substance: RASAGILINE MESYLATE
  4. SEBIPROX [Concomitant]
     Active Substance: CICLOPIROX OLAMINE
     Route: 065

REACTIONS (8)
  - Hot flush [Recovered/Resolved]
  - Pain [Recovered/Resolved]
  - Dyspnoea [Recovered/Resolved]
  - Product substitution issue [Recovered/Resolved]
  - Extrapyramidal disorder [Recovered/Resolved]
  - Peripheral swelling [Recovered/Resolved]
  - Cyanosis [Recovered/Resolved]
  - Erythema [Recovered/Resolved]

NARRATIVE: CASE EVENT DATE: 201901
